FAERS Safety Report 12625337 (Version 1)
Quarter: 2016Q3

REPORT INFORMATION
  Report Type: Report from Study
  Country: VN (occurrence: VN)
  Receive Date: 20160805
  Receipt Date: 20160805
  Transmission Date: 20161109
  Serious: Yes (Other)
  Sender: FDA-Public Use
  Company Number: VN-009507513-1607VNM013027

PATIENT
  Age: 73 Year
  Sex: Male

DRUGS (3)
  1. INSULIN [Concomitant]
     Active Substance: INSULIN NOS
     Dosage: UNK
     Dates: start: 20150801
  2. AMLODIPINE [Concomitant]
     Active Substance: AMLODIPINE BESYLATE
     Indication: HYPERTENSION
     Dosage: 5 MG, WHEN HIGH BLOOD PRESSURE
  3. COZAAR [Suspect]
     Active Substance: LOSARTAN POTASSIUM
     Dosage: ONE TABLET (50 MG), ONCE A DAY
     Route: 048
     Dates: start: 20150801

REACTIONS (2)
  - Fatigue [Recovering/Resolving]
  - Adenoma benign [Recovering/Resolving]

NARRATIVE: CASE EVENT DATE: 2016
